FAERS Safety Report 6164152-8 (Version None)
Quarter: 2009Q2

REPORT INFORMATION
  Report Type: 
  Country: None (occurrence: None)
  Receive Date: 20090420
  Receipt Date: 20090408
  Transmission Date: 20091009
  Serious: Yes (Hospitalization)
  Sender: FDA-Public Use
  Company Number: 2009-194827-NL

PATIENT
  Age: 57 Year
  Sex: Male

DRUGS (4)
  1. MIRTAZAPINE [Suspect]
     Dosage: ORAL
     Route: 048
     Dates: start: 20090306, end: 20090306
  2. CISPLATIN [Concomitant]
  3. GEMCITABINE HCL [Concomitant]
  4. .. [Concomitant]

REACTIONS (1)
  - LOSS OF CONSCIOUSNESS [None]
